FAERS Safety Report 7077199-4 (Version None)
Quarter: 2010Q4

REPORT INFORMATION
  Report Type: 
  Country: None (occurrence: None)
  Receive Date: 20101101
  Receipt Date: 20101026
  Transmission Date: 20110411
  Serious: Yes (Hospitalization)
  Sender: FDA-Public Use
  Company Number: Z0001421A

PATIENT
  Sex: Male
  Weight: 67.4 kg

DRUGS (5)
  1. OFATUMUMAB [Suspect]
     Dosage: 1300MG CUMULATIVE DOSE
     Route: 042
     Dates: start: 20090722
  2. CHLORAMBUCIL [Suspect]
     Dosage: 126MG CUMULATIVE DOSE
     Route: 048
     Dates: start: 20090722
  3. FORADIL [Concomitant]
     Indication: CHRONIC OBSTRUCTIVE PULMONARY DISEASE
     Route: 055
  4. SPIRIVA [Concomitant]
     Indication: CHRONIC OBSTRUCTIVE PULMONARY DISEASE
     Route: 055
  5. BEROVENT [Concomitant]
     Indication: CHRONIC OBSTRUCTIVE PULMONARY DISEASE

REACTIONS (1)
  - FEBRILE NEUTROPENIA [None]
